FAERS Safety Report 9404929 (Version 1)
Quarter: 2013Q3

REPORT INFORMATION
  Report Type: Spontaneous
  Country: US (occurrence: US)
  Receive Date: 20130717
  Receipt Date: 20130717
  Transmission Date: 20140515
  Serious: Yes (Other)
  Sender: FDA-Public Use
  Company Number: US-SANOFI-AVENTIS-2013SA069331

PATIENT
  Age: 21 Year
  Sex: Male

DRUGS (9)
  1. RISPERIDONE [Suspect]
     Indication: AUTISM
     Route: 065
     Dates: start: 2002, end: 2009
  2. RISPERIDONE [Suspect]
     Indication: AUTISM
     Route: 065
     Dates: start: 2009, end: 201107
  3. RISPERIDONE [Suspect]
     Indication: AUTISM
     Route: 065
  4. RISPERIDONE [Suspect]
     Indication: AUTISM
     Dosage: QPM
     Route: 065
     Dates: start: 2011, end: 2012
  5. RISPERIDONE [Suspect]
     Indication: AUTISM
     Dosage: AT NIGHT
     Route: 065
     Dates: start: 2012, end: 2012
  6. RISPERIDONE [Suspect]
     Indication: AUTISM
     Route: 065
     Dates: start: 2012, end: 201207
  7. KETOCONAZOLE [Suspect]
     Indication: PRIAPISM
     Route: 065
     Dates: end: 201208
  8. LEUPRORELIN ACETATE [Suspect]
     Indication: PRIAPISM
     Route: 065
     Dates: start: 201208, end: 201210
  9. CLONIDINE [Concomitant]
     Indication: AUTISM

REACTIONS (2)
  - Priapism [Recovered/Resolved]
  - Off label use [Unknown]
